FAERS Safety Report 4554212-7 (Version None)
Quarter: 2004Q4

REPORT INFORMATION
  Report Type: 
  Country: None (occurrence: None)
  Receive Date: 20041230
  Receipt Date: 20040622
  Transmission Date: 20050328
  Serious: Yes (Death)
  Sender: FDA-Public Use
  Company Number: 04-06-0907

PATIENT
  Age: 81 Year
  Sex: Male

DRUGS (4)
  1. CLOZAPINE [Suspect]
     Dosage: 150MG QD ORAL
     Route: 048
     Dates: start: 19980901, end: 20040503
  2. FUROSEMIDE [Concomitant]
  3. CLONAZEPAM [Concomitant]
  4. MIRTAZAPINE [Concomitant]

REACTIONS (1)
  - UNEVALUABLE EVENT [None]
